FAERS Safety Report 12343567 (Version 3)
Quarter: 2016Q4

REPORT INFORMATION
  Report Type: Spontaneous
  Country: NO (occurrence: NO)
  Receive Date: 20160506
  Receipt Date: 20161222
  Transmission Date: 20170207
  Serious: Yes (Life-Threatening, Hospitalization, Other)
  Sender: FDA-Public Use
  Company Number: NO-ASTRAZENECA-2016SE47130

PATIENT
  Age: 27301 Day
  Sex: Female

DRUGS (10)
  1. AMARYL [Concomitant]
     Active Substance: GLIMEPIRIDE
     Indication: TYPE 2 DIABETES MELLITUS
     Route: 048
     Dates: end: 20160220
  2. ONGLYZA [Concomitant]
     Active Substance: SAXAGLIPTIN HYDROCHLORIDE
     Indication: TYPE 2 DIABETES MELLITUS
     Route: 048
     Dates: end: 20160220
  3. PARACET [Concomitant]
     Active Substance: ACETAMINOPHEN
     Route: 048
  4. TOVIAZ [Concomitant]
     Active Substance: FESOTERODINE FUMARATE
     Route: 048
     Dates: end: 201602
  5. METOPROLOL TARTRATE. [Concomitant]
     Active Substance: METOPROLOL TARTRATE
     Route: 048
     Dates: end: 201602
  6. XIGDUO XR [Suspect]
     Active Substance: DAPAGLIFLOZIN PROPANEDIOL\METFORMIN HYDROCHLORIDE
     Indication: TYPE 2 DIABETES MELLITUS
     Dosage: 5 MG/1000 MG, TWO TIMES A DAY
     Route: 048
     Dates: end: 20160220
  7. PARALGIN FORTE [Concomitant]
     Active Substance: ACETAMINOPHEN\CODEINE PHOSPHATE
     Route: 048
  8. ACTIVELLE [Concomitant]
     Active Substance: ESTRADIOL\NORETHINDRONE ACETATE
     Dosage: 1 MG /0,5 MG
     Route: 048
     Dates: end: 201602
  9. METFORMIN [Concomitant]
     Active Substance: METFORMIN HYDROCHLORIDE
     Indication: TYPE 2 DIABETES MELLITUS
     Route: 048
     Dates: end: 20160220
  10. STILNOCT [Concomitant]
     Active Substance: ZOLPIDEM TARTRATE
     Dosage: 5.0MG UNKNOWN
     Route: 048

REACTIONS (7)
  - Coma [Unknown]
  - Ketoacidosis [Recovered/Resolved with Sequelae]
  - Hypotension [Unknown]
  - Basedow^s disease [Unknown]
  - Circulatory collapse [Unknown]
  - Cardiac arrest [Unknown]
  - Sepsis [Unknown]

NARRATIVE: CASE EVENT DATE: 20160220
